FAERS Safety Report 7784452-5 (Version None)
Quarter: 2011Q3

REPORT INFORMATION
  Report Type: 
  Country: None (occurrence: None)
  Receive Date: 20110928
  Receipt Date: 20110922
  Transmission Date: 20111222
  Serious: Yes (Death)
  Sender: FDA-Public Use
  Company Number: US-US-EMD SERONO, INC.-7015867

PATIENT
  Sex: Female
  Weight: 86 kg

DRUGS (7)
  1. KEPPRA [Concomitant]
  2. TOPROL-XL [Concomitant]
     Indication: HYPERTENSION
  3. AMITRIPTYLINE HCL [Concomitant]
     Indication: HEADACHE
  4. FOLIC ACID [Concomitant]
     Indication: COAGULOPATHY
  5. CYMBALTA [Concomitant]
  6. ZETIA [Concomitant]
  7. REBIF [Suspect]
     Indication: MULTIPLE SCLEROSIS
     Dates: start: 20100429

REACTIONS (1)
  - MYOCARDIAL INFARCTION [None]
